FAERS Safety Report 18655584 (Version 1)
Quarter: 2020Q4

REPORT INFORMATION
  Report Type: Spontaneous
  Country: US (occurrence: US)
  Receive Date: 20201223
  Receipt Date: 20201223
  Transmission Date: 20210114
  Serious: Yes (Death)
  Sender: FDA-Public Use
  Company Number: US-EMD SERONO-9207881

PATIENT
  Age: 51 Year
  Sex: Male

DRUGS (1)
  1. SEROSTIM [Suspect]
     Active Substance: SOMATROPIN
     Indication: HIV INFECTION
     Route: 058
     Dates: start: 20180315, end: 20201212

REACTIONS (1)
  - Death [Fatal]

NARRATIVE: CASE EVENT DATE: 20201212
